FAERS Safety Report 5197644-9 (Version None)
Quarter: 2006Q4

REPORT INFORMATION
  Report Type: 
  Country: None (occurrence: None)
  Receive Date: 20061228
  Receipt Date: 20061218
  Transmission Date: 20070319
  Serious: Yes (Death, Life-Threatening, Hospitalization)
  Sender: FDA-Public Use
  Company Number: 028-21880-06110605

PATIENT
  Age: 63 Year
  Sex: Male
  Weight: 71.2 kg

DRUGS (7)
  1. REVLIMID [Suspect]
     Indication: CHRONIC LYMPHOCYTIC LEUKAEMIA
     Dosage: 10 MG, DAILY; ORAL
     Route: 048
     Dates: start: 20061019, end: 20061108
  2. NILSTAT (NYSTATIN) [Concomitant]
  3. FLAGYL [Concomitant]
  4. TYLENOL II (SOLPADEINE) [Concomitant]
  5. ALLOPURINOL SODIUM [Concomitant]
  6. NAPROSYN [Concomitant]
  7. IMODIUM [Concomitant]

REACTIONS (19)
  - ACTIVATED PARTIAL THROMBOPLASTIN TIME PROLONGED [None]
  - CANDIDIASIS [None]
  - CENTRAL LINE INFECTION [None]
  - CHOLESTASIS [None]
  - COAGULOPATHY [None]
  - CONTINUOUS HAEMODIAFILTRATION [None]
  - DYSPNOEA [None]
  - FEBRILE NEUTROPENIA [None]
  - GENERAL PHYSICAL HEALTH DETERIORATION [None]
  - HAEMOGLOBIN DECREASED [None]
  - HYPOTENSION [None]
  - HYPOXIA [None]
  - INTERNATIONAL NORMALISED RATIO INCREASED [None]
  - ISCHAEMIC HEPATITIS [None]
  - LIVER DISORDER [None]
  - MULTI-ORGAN FAILURE [None]
  - PLATELET COUNT DECREASED [None]
  - SEPSIS [None]
  - STREPTOCOCCAL INFECTION [None]
